FAERS Safety Report 10144099 (Version 6)
Quarter: 2015Q1

REPORT INFORMATION
  Report Type: Spontaneous
  Country: FR (occurrence: FR)
  Receive Date: 20140430
  Receipt Date: 20150318
  Transmission Date: 20150720
  Serious: Yes (Hospitalization, Disabling, Congenital Anomaly, Other)
  Sender: FDA-Public Use
  Company Number: FR-ABBVIE-06P-056-0325643-00

PATIENT
  Age: 8 Month
  Sex: Female

DRUGS (1)
  1. DEPAKENE [Suspect]
     Active Substance: VALPROIC ACID
     Indication: MATERNAL EXPOSURE TIMING UNSPECIFIED
     Route: 064

REACTIONS (39)
  - Speech disorder developmental [Unknown]
  - Micturition urgency [Unknown]
  - Hypertelorism of orbit [Unknown]
  - Psychomotor retardation [Unknown]
  - Bladder disorder [Unknown]
  - Phonological disorder [Unknown]
  - Communication disorder [Unknown]
  - Hypoacusis [Unknown]
  - Dysmorphism [Unknown]
  - Encephalopathy [Unknown]
  - Psychiatric symptom [Unknown]
  - Agitation [Unknown]
  - Myopia [Unknown]
  - Dyskinesia [Unknown]
  - Fall [Unknown]
  - Coordination abnormal [Unknown]
  - Dysgraphia [Unknown]
  - Pollakiuria [Unknown]
  - Foetal exposure during pregnancy [Unknown]
  - Electroencephalogram abnormal [Unknown]
  - Deafness [Unknown]
  - Cerebral atrophy [Unknown]
  - Nose deformity [Unknown]
  - Memory impairment [Unknown]
  - Urinary incontinence [Unknown]
  - Partial seizures [Unknown]
  - Balance disorder [Unknown]
  - Learning disorder [Unknown]
  - Bronchiolitis [Recovering/Resolving]
  - Lung infection [Recovering/Resolving]
  - Otitis media [Unknown]
  - Hypertonia [Unknown]
  - Cleft uvula [Unknown]
  - Hypotonia [Unknown]
  - Infantile asthma [Unknown]
  - Attention deficit/hyperactivity disorder [Unknown]
  - Nasopharyngeal reflux [Unknown]
  - Psychomotor skills impaired [Unknown]
  - Gastrooesophageal reflux disease [Unknown]

NARRATIVE: CASE EVENT DATE: 200507
